FAERS Safety Report 8027801-5 (Version None)
Quarter: 2012Q1

REPORT INFORMATION
  Report Type: 
  Country: None (occurrence: None)
  Receive Date: 20120104
  Receipt Date: 20111215
  Transmission Date: 20120608
  Serious: Yes (Hospitalization)
  Sender: FDA-Public Use
  Company Number: JPI-P-018746

PATIENT
  Age: 49 Year
  Sex: Female
  Weight: 47.1741 kg

DRUGS (4)
  1. MULTIPLE UNSPECIFIED MEDICATIONS [Concomitant]
  2. XYREM [Suspect]
     Indication: NARCOLEPSY
     Dosage: 7 GM (3.5 GM, 2 IN 1 D), ORAL, 8 GM (4 GM, 2 IN 1 D), ORAL, 9 GM (4.5 GM, 2 IN 1 D), ORAL
     Route: 048
     Dates: start: 20111214, end: 20111215
  3. XYREM [Suspect]
     Indication: NARCOLEPSY
     Dosage: 7 GM (3.5 GM, 2 IN 1 D), ORAL, 8 GM (4 GM, 2 IN 1 D), ORAL, 9 GM (4.5 GM, 2 IN 1 D), ORAL
     Route: 048
     Dates: start: 20111209, end: 20111211
  4. XYREM [Suspect]
     Indication: NARCOLEPSY
     Dosage: 7 GM (3.5 GM, 2 IN 1 D), ORAL, 8 GM (4 GM, 2 IN 1 D), ORAL, 9 GM (4.5 GM, 2 IN 1 D), ORAL
     Route: 048
     Dates: start: 20111212, end: 20111213

REACTIONS (5)
  - DYSPEPSIA [None]
  - HYPER IGE SYNDROME [None]
  - INSOMNIA [None]
  - CONDITION AGGRAVATED [None]
  - DRUG INEFFECTIVE [None]
